FAERS Safety Report 9159310 (Version 1)
Quarter: 2013Q1

REPORT INFORMATION
  Report Type: Spontaneous
  Country: IT (occurrence: IT)
  Receive Date: 20130313
  Receipt Date: 20130313
  Transmission Date: 20140127
  Serious: Yes (Other)
  Sender: FDA-Public Use
  Company Number: IT-JNJFOC-20130300250

PATIENT
  Age: 43 Year
  Sex: Male

DRUGS (1)
  1. DUROGESIC [Suspect]
     Indication: PRODUCT USED FOR UNKNOWN INDICATION
     Route: 062
     Dates: start: 20130228, end: 20130228

REACTIONS (3)
  - Self injurious behaviour [Unknown]
  - Nausea [Unknown]
  - Vomiting [Unknown]
